FAERS Safety Report 7406998-1 (Version None)
Quarter: 2011Q2

REPORT INFORMATION
  Report Type: 
  Country: None (occurrence: None)
  Receive Date: 20110411
  Receipt Date: 20110404
  Transmission Date: 20111010
  Serious: No
  Sender: FDA-Public Use
  Company Number: US-PFIZER INC-2011060138

PATIENT
  Sex: Male

DRUGS (4)
  1. OXYCODONE [Concomitant]
     Dosage: UNK
  2. FLEXERIL [Concomitant]
     Dosage: UNK
  3. LYRICA [Suspect]
     Indication: NEURALGIA
     Dosage: 75 MG, 2X/DAY
     Route: 048
     Dates: start: 20090325, end: 20110315
  4. MORPHINE SULFATE [Concomitant]
     Dosage: UNK

REACTIONS (1)
  - OEDEMA PERIPHERAL [None]
